FAERS Safety Report 7759498-3 (Version None)
Quarter: 2011Q3

REPORT INFORMATION
  Report Type: 
  Country: None (occurrence: None)
  Receive Date: 20110919
  Receipt Date: 20110919
  Transmission Date: 20111222
  Serious: Yes (Other)
  Sender: FDA-Public Use
  Company Number: None

PATIENT
  Age: 32 Year
  Sex: Male
  Weight: 90.264 kg

DRUGS (3)
  1. XANAX XR [Suspect]
     Indication: AGORAPHOBIA
     Dosage: .5MG 1-2 TIMES DAILY AS NEEDED
     Route: 048
     Dates: start: 20110301, end: 20110813
  2. XANAX XR [Suspect]
     Indication: ANXIETY
     Dosage: .5MG 1-2 TIMES DAILY AS NEEDED
     Route: 048
     Dates: start: 20110301, end: 20110813
  3. KLONOPIN [Concomitant]
     Dosage: 2MG 1 DAILY IN MORNING
     Route: 048
     Dates: start: 20110301, end: 20110930

REACTIONS (15)
  - FEAR [None]
  - AGORAPHOBIA [None]
  - DISSOCIATION [None]
  - SENSORY DISTURBANCE [None]
  - WEIGHT DECREASED [None]
  - INFLUENZA LIKE ILLNESS [None]
  - WITHDRAWAL SYNDROME [None]
  - HEADACHE [None]
  - MUSCLE TWITCHING [None]
  - DEPRESSION [None]
  - VOMITING [None]
  - ANXIETY [None]
  - DIARRHOEA [None]
  - DEPERSONALISATION [None]
  - PAIN [None]
